FAERS Safety Report 22967490 (Version 2)
Quarter: 2023Q4

REPORT INFORMATION
  Report Type: Spontaneous
  Country: US (occurrence: US)
  Receive Date: 20230921
  Receipt Date: 20231013
  Transmission Date: 20240110
  Serious: No
  Sender: FDA-Public Use
  Company Number: US-FreseniusKabi-FK202314504

PATIENT
  Age: 37 Year
  Sex: Male
  Weight: 87.7 kg

DRUGS (3)
  1. XYLOCAINE WITH EPINEPHRINE [Suspect]
     Active Substance: EPINEPHRINE BITARTRATE\LIDOCAINE HYDROCHLORIDE
     Indication: Local anaesthesia
     Dosage: HE NEEDED TO USE 40 CCS, RATHER THAN THE 25 CCS THAT HE TYPICALLY USES?FREQUENCY: ONCE
     Dates: start: 20230802
  2. FLUTICASONE [Concomitant]
     Active Substance: FLUTICASONE
     Indication: Product used for unknown indication
     Dosage: ACTUATION NASAL SPRAY - 2 SPRAYS IN BOTH NOSTRILS DAILY
  3. MONTELUKAST [Concomitant]
     Active Substance: MONTELUKAST SODIUM
     Indication: Product used for unknown indication
     Dosage: FREQUENCY: DAILY

REACTIONS (1)
  - Therapeutic product effect decreased [Unknown]

NARRATIVE: CASE EVENT DATE: 20230802
